FAERS Safety Report 7017582-6 (Version None)
Quarter: 2010Q3

REPORT INFORMATION
  Report Type: 
  Country: None (occurrence: None)
  Receive Date: 20100928
  Receipt Date: 20100615
  Transmission Date: 20110219
  Serious: No
  Sender: FDA-Public Use
  Company Number: US-MYLANLABS-2010S1009450

PATIENT
  Age: 49 Year
  Sex: Female
  Weight: 54.43 kg

DRUGS (6)
  1. TOPIRAMATE TABLETS [Suspect]
     Indication: MIGRAINE
     Route: 048
     Dates: start: 20091101
  2. TOPIRAMATE TABLETS [Suspect]
     Route: 048
     Dates: start: 20100301, end: 20100501
  3. MULTI-VITAMIN [Concomitant]
  4. IMITREX [Concomitant]
  5. VITAMINS [Concomitant]
  6. MAGNESIUM [Concomitant]

REACTIONS (2)
  - OSTEOPENIA [None]
  - OSTEOPOROSIS [None]
